FAERS Safety Report 7688941-3 (Version None)
Quarter: 2011Q3

REPORT INFORMATION
  Report Type: 
  Country: None (occurrence: None)
  Receive Date: 20110817
  Receipt Date: 20110811
  Transmission Date: 20111222
  Serious: Yes (Death)
  Sender: FDA-Public Use
  Company Number: PHHY2011CN72212

PATIENT
  Sex: Female

DRUGS (1)
  1. GLEEVEC [Suspect]
     Indication: CHRONIC MYELOID LEUKAEMIA
     Dosage: 500 MG PER DAY
     Route: 048
     Dates: start: 20110118

REACTIONS (2)
  - CHRONIC MYELOID LEUKAEMIA [None]
  - CEREBRAL HAEMORRHAGE [None]
